FAERS Safety Report 10730752 (Version 2)
Quarter: 2015Q1

REPORT INFORMATION
  Report Type: Spontaneous
  Country: US (occurrence: US)
  Receive Date: 20150122
  Receipt Date: 20150127
  Transmission Date: 20150721
  Serious: Yes (Other)
  Sender: FDA-Public Use
  Company Number: US-BAXTER-2015BAX003449

PATIENT
  Age: 57 Year
  Sex: Male
  Weight: 61.29 kg

DRUGS (1)
  1. 0.9% SODIUM CHLORIDE INJECTION [Suspect]
     Active Substance: SODIUM CHLORIDE
     Indication: PRODUCT USED FOR UNKNOWN INDICATION
     Route: 065

REACTIONS (7)
  - Infection [Unknown]
  - Pain in extremity [Unknown]
  - Angina pectoris [Unknown]
  - Malaise [Unknown]
  - Oedema [Unknown]
  - Unevaluable event [Unknown]
  - Venous occlusion [Unknown]
